FAERS Safety Report 5523205-5 (Version None)
Quarter: 2007Q4

REPORT INFORMATION
  Report Type: 
  Country: None (occurrence: None)
  Receive Date: 20071121
  Receipt Date: 20071109
  Transmission Date: 20080405
  Serious: Yes (Other)
  Sender: FDA-Public Use
  Company Number: JP-BRISTOL-MYERS SQUIBB COMPANY-13984596

PATIENT
  Age: 58 Year
  Sex: Female

DRUGS (10)
  1. ENDOXAN TABS [Suspect]
     Indication: METASTASES TO LIVER
     Route: 048
  2. PACLITAXEL [Suspect]
     Indication: METASTASES TO LIVER
  3. DOCETAXEL [Suspect]
     Indication: BREAST CANCER
  4. CAPECITABINE [Suspect]
     Indication: METASTASES TO LIVER
     Route: 048
  5. RADIOTHERAPY [Suspect]
  6. TAMOXIFEN CITRATE [Concomitant]
  7. TOREMIFENE CITRATE [Concomitant]
  8. ANASTROZOLE [Concomitant]
  9. DISODIUM INCADRONATE [Concomitant]
  10. MEDROXYPROGESTERONE ACETATE [Concomitant]

REACTIONS (1)
  - MYELODYSPLASTIC SYNDROME [None]
